FAERS Safety Report 10794161 (Version 2)
Quarter: 2015Q2

REPORT INFORMATION
  Report Type: Spontaneous
  Country: US (occurrence: US)
  Receive Date: 20150213
  Receipt Date: 20150626
  Transmission Date: 20150821
  Serious: Yes (Other)
  Sender: FDA-Public Use
  Company Number: US-GLAXOSMITHKLINE-US2015GSK019944

PATIENT
  Sex: Female

DRUGS (1)
  1. FLONASE [Suspect]
     Active Substance: FLUTICASONE PROPIONATE
     Indication: SINUS DISORDER
     Dosage: 50 UG, U
     Dates: start: 20061118

REACTIONS (4)
  - Pharyngeal operation [Unknown]
  - Mastectomy [Unknown]
  - Laryngeal neoplasm [Unknown]
  - Neoplasm malignant [Unknown]
